FAERS Safety Report 4808888-7 (Version None)
Quarter: 2005Q4

REPORT INFORMATION
  Report Type: 
  Country: None (occurrence: None)
  Receive Date: 20051025
  Receipt Date: 20051018
  Transmission Date: 20060501
  Serious: Yes (Hospitalization)
  Sender: FDA-Public Use
  Company Number: JP-JNJFOC-20051003410

PATIENT
  Age: 78 Year
  Sex: Female

DRUGS (13)
  1. CRAVIT [Suspect]
     Route: 048
     Dates: start: 20051001, end: 20051008
  2. CRAVIT [Suspect]
     Indication: UPPER RESPIRATORY TRACT INFLAMMATION
     Route: 048
     Dates: start: 20051001, end: 20051008
  3. GASTER D [Concomitant]
     Route: 048
  4. MEXITIL [Concomitant]
     Route: 065
  5. PAXIL [Concomitant]
     Route: 048
  6. MEVALOTIN [Concomitant]
     Route: 048
  7. PL [Concomitant]
     Route: 048
  8. MUCODYNE [Concomitant]
     Route: 048
  9. MEDICON [Concomitant]
     Route: 048
  10. CALONAL [Concomitant]
     Route: 065
  11. LANIRAPID [Concomitant]
     Route: 048
  12. ASPIRIN [Concomitant]
     Route: 048
  13. PANALDINE [Concomitant]
     Route: 048

REACTIONS (2)
  - DEPRESSED LEVEL OF CONSCIOUSNESS [None]
  - GRAND MAL CONVULSION [None]
